FAERS Safety Report 8252926-9 (Version None)
Quarter: 2012Q2

REPORT INFORMATION
  Report Type: 
  Country: None (occurrence: None)
  Receive Date: 20120402
  Receipt Date: 20120202
  Transmission Date: 20120825
  Serious: Yes (Other)
  Sender: FDA-Public Use
  Company Number: US-ABBOTT-12P-163-0898857-00

PATIENT
  Sex: Male
  Weight: 107.6 kg

DRUGS (4)
  1. ANDROGEL [Suspect]
     Indication: BLOOD TESTOSTERONE DECREASED
     Dosage: 4 PUMPS PER DAY
  2. VYTORIN [Concomitant]
     Indication: BLOOD CHOLESTEROL
  3. SULFAMETHAXAZOLE [Concomitant]
     Indication: INFECTION PROPHYLAXIS
  4. SULFAMETHAXAZOLE [Concomitant]
     Indication: FURUNCLE

REACTIONS (2)
  - PROSTATIC SPECIFIC ANTIGEN INCREASED [None]
  - PROSTATE CANCER [None]
